FAERS Safety Report 7251339-6 (Version None)
Quarter: 2011Q1

REPORT INFORMATION
  Report Type: 
  Country: None (occurrence: None)
  Receive Date: 20110128
  Receipt Date: 20110125
  Transmission Date: 20110831
  Serious: Yes (Other)
  Sender: FDA-Public Use
  Company Number: US-PFIZER INC-2011018579

PATIENT

DRUGS (1)
  1. LIPITOR [Suspect]
     Dosage: 40 MG, DAILY

REACTIONS (1)
  - FUNGAL INFECTION [None]
